FAERS Safety Report 5765083-5 (Version None)
Quarter: 2008Q2

REPORT INFORMATION
  Report Type: 
  Country: None (occurrence: None)
  Receive Date: 20080611
  Receipt Date: 20080529
  Transmission Date: 20081010
  Serious: Yes (Other)
  Sender: FDA-Public Use
  Company Number: FR-BRISTOL-MYERS SQUIBB COMPANY-14218937

PATIENT
  Age: 69 Year
  Sex: Male

DRUGS (5)
  1. CYCLOPHOSPHAMIDE [Suspect]
     Indication: BURKITT'S LYMPHOMA
     Route: 065
     Dates: start: 20070101
  2. ADRIAMYCIN PFS [Suspect]
     Indication: BURKITT'S LYMPHOMA
     Route: 065
     Dates: start: 20070101
  3. ONCOVIN [Suspect]
     Indication: BURKITT'S LYMPHOMA
     Route: 065
     Dates: start: 20070101
  4. METHOTREXATE [Suspect]
     Indication: BURKITT'S LYMPHOMA
     Route: 065
     Dates: start: 20070101
  5. PREDNISOLONE [Suspect]
     Indication: BURKITT'S LYMPHOMA
     Route: 065
     Dates: start: 20070101

REACTIONS (1)
  - RENAL FAILURE ACUTE [None]
